FAERS Safety Report 16077733 (Version 1)
Quarter: 2019Q1

REPORT INFORMATION
  Report Type: Spontaneous
  Country: US (occurrence: US)
  Receive Date: 20190214
  Receipt Date: 20190214
  Transmission Date: 20190418
  Serious: Yes (Hospitalization)
  Sender: FDA-Public Use
  Company Number: None

PATIENT
  Age: 51 Year
  Sex: Female
  Weight: 78.25 kg

DRUGS (2)
  1. CARBOPLATIN. [Suspect]
     Active Substance: CARBOPLATIN
     Dates: end: 20160811
  2. TAXOL [Suspect]
     Active Substance: PACLITAXEL
     Dates: end: 20160811

REACTIONS (10)
  - Pain [None]
  - Odynophagia [None]
  - Oesophagitis [None]
  - Hypophagia [None]
  - Nausea [None]
  - Metastases to bone [None]
  - Metastases to liver [None]
  - Weight decreased [None]
  - Vomiting [None]
  - Metastases to lymph nodes [None]

NARRATIVE: CASE EVENT DATE: 20160818
